FAERS Safety Report 5602745-4 (Version None)
Quarter: 2008Q1

REPORT INFORMATION
  Report Type: 
  Country: None (occurrence: None)
  Receive Date: 20080125
  Receipt Date: 20070912
  Transmission Date: 20080703
  Serious: No
  Sender: FDA-Public Use
  Company Number: A0673431A

PATIENT
  Age: 60 Year

DRUGS (2)
  1. HYCAMTIN [Suspect]
     Dosage: 2.75MG VARIABLE DOSE
     Route: 042
     Dates: start: 20070821
  2. NO CONCURRENT MEDICATION [Concomitant]

REACTIONS (1)
  - INFUSION SITE EXTRAVASATION [None]
